FAERS Safety Report 8793231 (Version 4)
Quarter: 2013Q4

REPORT INFORMATION
  Report Type: Report from Study
  Country: CA (occurrence: CA)
  Receive Date: 20120917
  Receipt Date: 20131224
  Transmission Date: 20140711
  Serious: Yes (Other)
  Sender: FDA-Public Use
  Company Number: CA-ROCHE-1115935

PATIENT
  Age: 77 Year
  Sex: Female
  Weight: 90 kg

DRUGS (11)
  1. ACTEMRA [Suspect]
     Indication: RHEUMATOID ARTHRITIS
     Route: 042
     Dates: start: 20110110
  2. ATENOLOL [Concomitant]
  3. TRIAZIDE [Concomitant]
  4. PANTOLOC [Concomitant]
  5. PREDNISONE [Concomitant]
  6. AMITRIPTYLINE [Concomitant]
  7. ZOPICLONE [Concomitant]
  8. VITAMIN B12 [Concomitant]
  9. VITAMIN B6 [Concomitant]
  10. FUROSEMIDE [Concomitant]
  11. RESOTRAN [Concomitant]
     Route: 065
     Dates: start: 201306

REACTIONS (29)
  - Local swelling [Recovering/Resolving]
  - Local swelling [Not Recovered/Not Resolved]
  - Musculoskeletal pain [Not Recovered/Not Resolved]
  - Urinary tract infection [Recovered/Resolved]
  - Nausea [Recovered/Resolved]
  - Vomiting [Recovered/Resolved]
  - Abdominal pain [Unknown]
  - Fatigue [Recovered/Resolved]
  - Oedema peripheral [Not Recovered/Not Resolved]
  - Eye infection [Recovering/Resolving]
  - Neck pain [Recovering/Resolving]
  - Musculoskeletal pain [Recovering/Resolving]
  - Back pain [Recovering/Resolving]
  - Pain [Recovering/Resolving]
  - Oropharyngeal pain [Recovering/Resolving]
  - Headache [Recovering/Resolving]
  - Diarrhoea [Recovered/Resolved]
  - Nasopharyngitis [Recovered/Resolved]
  - Abdominal distension [Recovering/Resolving]
  - Pain in extremity [Not Recovered/Not Resolved]
  - Joint swelling [Recovering/Resolving]
  - Constipation [Not Recovered/Not Resolved]
  - Arthralgia [Recovering/Resolving]
  - Fall [Unknown]
  - Wrist fracture [Unknown]
  - Joint injury [Unknown]
  - Arthropod sting [Recovering/Resolving]
  - Arthralgia [Not Recovered/Not Resolved]
  - Joint range of motion decreased [Not Recovered/Not Resolved]
